FAERS Safety Report 5048903-1 (Version None)
Quarter: 2006Q3

REPORT INFORMATION
  Report Type: 
  Country: None (occurrence: None)
  Receive Date: 20060712
  Receipt Date: 20050803
  Transmission Date: 20061208
  Serious: No
  Sender: FDA-Public Use
  Company Number: US-GLAXOSMITHKLINE-A0568820A

PATIENT
  Age: 27 Year
  Sex: Male
  Weight: 68.2 kg

DRUGS (2)
  1. IMITREX [Suspect]
     Indication: MIGRAINE
     Dosage: 100MG SINGLE DOSE
     Route: 048
     Dates: start: 20050701, end: 20050701
  2. NO CONCURRENT MEDICATIONS [Concomitant]

REACTIONS (3)
  - CHEST DISCOMFORT [None]
  - HYPERHIDROSIS [None]
  - NAUSEA [None]
